FAERS Safety Report 15567174 (Version 1)
Quarter: 2018Q4

REPORT INFORMATION
  Report Type: Spontaneous
  Country: BG (occurrence: BG)
  Receive Date: 20181030
  Receipt Date: 20181030
  Transmission Date: 20190205
  Serious: Yes (Other)
  Sender: FDA-Public Use
  Company Number: BG-TAKEDA-2018TUS031306

PATIENT
  Sex: Male

DRUGS (4)
  1. ADENURIC [Suspect]
     Active Substance: FEBUXOSTAT
     Dosage: 60 MG, QOD
     Route: 048
     Dates: start: 2018, end: 201807
  2. TRIFAS                             /00918101/ [Concomitant]
     Indication: OEDEMA DUE TO CARDIAC DISEASE
     Dosage: 10 MG, QD
     Route: 048
  3. ADENURIC [Suspect]
     Active Substance: FEBUXOSTAT
     Indication: GOUT
     Dosage: 80 MG, QD
     Route: 048
     Dates: start: 201807, end: 2018
  4. ADENURIC [Suspect]
     Active Substance: FEBUXOSTAT
     Dosage: UNK
     Route: 048
     Dates: start: 2018

REACTIONS (5)
  - Wrong technique in product usage process [Unknown]
  - Product use issue [Unknown]
  - Photopsia [Recovered/Resolved]
  - Feeling hot [Recovered/Resolved]
  - Dizziness [Recovered/Resolved]

NARRATIVE: CASE EVENT DATE: 201807
